FAERS Safety Report 10222232 (Version 1)
Quarter: 2014Q2

REPORT INFORMATION
  Report Type: Spontaneous
  Country: US (occurrence: US)
  Receive Date: 20140606
  Receipt Date: 20140606
  Transmission Date: 20141212
  Serious: Yes (Hospitalization)
  Sender: FDA-Public Use
  Company Number: US-GLAXOSMITHKLINE-A1075506A

PATIENT
  Age: 83 Year
  Sex: Female

DRUGS (7)
  1. ADVAIR [Suspect]
     Indication: CHRONIC OBSTRUCTIVE PULMONARY DISEASE
     Dosage: 1PUFF TWICE PER DAY
     Route: 055
     Dates: start: 201403
  2. LISINOPRIL [Concomitant]
  3. VITAMIN C [Concomitant]
  4. MULTI VITAMIN [Concomitant]
  5. LASIX [Concomitant]
  6. METOPROLOL [Concomitant]
  7. DILTIAZEM [Concomitant]

REACTIONS (5)
  - Cardiac failure congestive [Recovered/Resolved]
  - Pericardial effusion [Recovered/Resolved]
  - Dysphagia [Unknown]
  - Herpes zoster [Unknown]
  - Rehabilitation therapy [Unknown]
